FAERS Safety Report 5059636-X (Version None)
Quarter: 2006Q3

REPORT INFORMATION
  Report Type: 
  Country: None (occurrence: None)
  Receive Date: 20060724
  Receipt Date: 20060328
  Transmission Date: 20061208
  Serious: Yes (Other)
  Sender: FDA-Public Use
  Company Number: US-GLAXOSMITHKLINE-A0599344A

PATIENT
  Sex: Female

DRUGS (1)
  1. HYCAMTIN [Suspect]
     Route: 065

REACTIONS (1)
  - PANCYTOPENIA [None]
